FAERS Safety Report 12835955 (Version 3)
Quarter: 2016Q4

REPORT INFORMATION
  Report Type: Spontaneous
  Country: JP (occurrence: JP)
  Receive Date: 20161011
  Receipt Date: 20161128
  Transmission Date: 20170207
  Serious: Yes (Life-Threatening, Hospitalization, Other)
  Sender: FDA-Public Use
  Company Number: JP-PFIZER INC-2016467293

PATIENT
  Age: 56 Year
  Sex: Male
  Weight: 83 kg

DRUGS (9)
  1. EFFEXOR [Suspect]
     Active Substance: VENLAFAXINE HYDROCHLORIDE
     Dosage: 112.5 MG, 1X/DAY
     Route: 048
     Dates: start: 20160826, end: 20160901
  2. LEXOTAN [Concomitant]
     Active Substance: BROMAZEPAM
     Indication: DEPRESSION
     Dosage: 5 MG, 3X/DAY
     Route: 048
     Dates: start: 20160810
  3. EFFEXOR [Suspect]
     Active Substance: VENLAFAXINE HYDROCHLORIDE
     Dosage: 75 MG, 1X/DAY
     Route: 048
     Dates: start: 20160818, end: 20160825
  4. EFFEXOR [Suspect]
     Active Substance: VENLAFAXINE HYDROCHLORIDE
     Dosage: 150 MG, 1X/DAY
     Route: 048
     Dates: start: 20160902, end: 20160908
  5. PHENOBAL [Concomitant]
     Active Substance: PHENOBARBITAL
     Indication: INSOMNIA
     Dosage: 30 MG, 1X/DAY
     Route: 048
     Dates: start: 20160810
  6. EFFEXOR [Suspect]
     Active Substance: VENLAFAXINE HYDROCHLORIDE
     Indication: DEPRESSION
     Dosage: 37.5 MG, 1X/DAY
     Route: 048
     Dates: start: 20160810, end: 20160817
  7. NORVASC [Concomitant]
     Active Substance: AMLODIPINE BESYLATE
     Indication: HYPERTENSION
     Dosage: 5 MG, 1X/DAY
     Route: 048
     Dates: start: 20160810
  8. EFFEXOR [Suspect]
     Active Substance: VENLAFAXINE HYDROCHLORIDE
     Dosage: UNK
  9. BENZALIN [Concomitant]
     Active Substance: NITRAZEPAM
     Indication: INSOMNIA
     Dosage: 10 MG, 1X/DAY
     Route: 048
     Dates: start: 20160810

REACTIONS (14)
  - Suicidal ideation [Recovering/Resolving]
  - Logorrhoea [Recovering/Resolving]
  - Irritability [Recovering/Resolving]
  - Bipolar I disorder [Recovering/Resolving]
  - Mania [Recovering/Resolving]
  - Irritability [Recovering/Resolving]
  - Hyperhidrosis [Recovering/Resolving]
  - Tremor [Recovering/Resolving]
  - Bipolar II disorder [Recovering/Resolving]
  - Hyperkinesia [Recovering/Resolving]
  - Flight of ideas [Recovering/Resolving]
  - Insomnia [Recovering/Resolving]
  - Urinary retention [Unknown]
  - Restlessness [Recovering/Resolving]

NARRATIVE: CASE EVENT DATE: 2016
